FAERS Safety Report 24061516 (Version 1)
Quarter: 2024Q3

REPORT INFORMATION
  Report Type: Spontaneous
  Country: US (occurrence: US)
  Receive Date: 20240708
  Receipt Date: 20240708
  Transmission Date: 20241016
  Serious: No
  Sender: INCYTE
  Company Number: US-INCYTE CORPORATION-2024IN006928

PATIENT

DRUGS (2)
  1. JAKAFI [Suspect]
     Active Substance: RUXOLITINIB
     Indication: Myeloproliferative neoplasm
     Dosage: 10 MILLIGRAM, BID
     Route: 048
     Dates: start: 20240316
  2. BESREMI [Concomitant]
     Active Substance: ROPEGINTERFERON ALFA-2B-NJFT
     Indication: Product used for unknown indication
     Dosage: 100 MCG ONCE EVERY 14 DAYS (500 MCG/ML PF SYRINGLE)
     Route: 065

REACTIONS (6)
  - Dairy intolerance [Unknown]
  - Abdominal pain upper [Unknown]
  - Fatigue [Unknown]
  - Product dose omission in error [Unknown]
  - Depressed mood [Unknown]
  - Off label use [Unknown]

NARRATIVE: CASE EVENT DATE: 20240316
